FAERS Safety Report 26206661 (Version 1)
Quarter: 2025Q4

REPORT INFORMATION
  Report Type: Spontaneous
  Country: US (occurrence: US)
  Receive Date: 20251229
  Receipt Date: 20251229
  Transmission Date: 20260117
  Serious: No
  Sender: SANOFI AVENTIS
  Company Number: US-SA-2025SA386336

PATIENT
  Age: 40 Year
  Sex: Female

DRUGS (2)
  1. DUPIXENT [Suspect]
     Active Substance: DUPILUMAB
     Indication: Hidradenitis
     Dosage: 300 MG, QOW
     Route: 058
     Dates: start: 201706
  2. DUPIXENT [Suspect]
     Active Substance: DUPILUMAB
     Indication: Obstructive sleep apnoea syndrome

REACTIONS (2)
  - Condition aggravated [Recovered/Resolved]
  - Product use in unapproved indication [Unknown]

NARRATIVE: CASE EVENT DATE: 20170601
